FAERS Safety Report 17084392 (Version 2)
Quarter: 2020Q1

REPORT INFORMATION
  Report Type: Report from Study
  Country: US (occurrence: US)
  Receive Date: 20191127
  Receipt Date: 20200123
  Transmission Date: 20200409
  Serious: Yes (Other)
  Sender: FDA-Public Use
  Company Number: US-GLAXOSMITHKLINE-US2019TSO194624

PATIENT
  Age: 69 Year
  Sex: Female

DRUGS (4)
  1. NIRAPARIB [Suspect]
     Active Substance: NIRAPARIB
     Dosage: 200 MG DAILY IN THE EVENING WITH FOOD
     Route: 048
  2. NIRAPARIB [Suspect]
     Active Substance: NIRAPARIB
     Dosage: 200 MG, QD
     Route: 048
  3. NIRAPARIB [Suspect]
     Active Substance: NIRAPARIB
     Dosage: 200 MG DAILY IN THE EVENING WITH FOOD
     Dates: start: 2019
  4. NIRAPARIB [Suspect]
     Active Substance: NIRAPARIB
     Indication: MALIGNANT PERITONEAL NEOPLASM
     Dosage: 300 MG, QD
     Route: 048
     Dates: start: 20191017, end: 2019

REACTIONS (12)
  - Gastric cancer [Unknown]
  - Feeling of despair [Recovering/Resolving]
  - Peripheral swelling [Unknown]
  - Full blood count decreased [Unknown]
  - Sleep disorder [Unknown]
  - Neoplasm [Unknown]
  - Decreased appetite [Unknown]
  - Anaemia [Recovered/Resolved]
  - Drug intolerance [Unknown]
  - Headache [Unknown]
  - Malaise [Unknown]
  - Tremor [Unknown]

NARRATIVE: CASE EVENT DATE: 201910
